FAERS Safety Report 8375001-1 (Version None)
Quarter: 2012Q2

REPORT INFORMATION
  Report Type: 
  Country: None (occurrence: None)
  Receive Date: 20120521
  Receipt Date: 20120516
  Transmission Date: 20120825
  Serious: Yes (Death)
  Sender: FDA-Public Use
  Company Number: DE-ROCHE-800984

PATIENT
  Sex: Male
  Weight: 70 kg

DRUGS (8)
  1. LERCADIP [Concomitant]
     Dosage: REPORTED AS 'LERCAPID 10'
  2. RAMIPRIL [Concomitant]
     Dates: start: 20110902, end: 20110903
  3. VEMURAFENIB [Suspect]
     Indication: METASTATIC MALIGNANT MELANOMA
     Dosage: DATE OF LAST DOSE PRIOR TO SAE:02 SEP 2011
     Route: 048
     Dates: start: 20110824, end: 20110902
  4. SIMVASTATIN [Concomitant]
  5. ASPIRIN [Concomitant]
  6. BISOPROLOL FUMARATE [Concomitant]
     Dosage: DOSE:5, UNIT:UNSPECIFIED
  7. RAMIPRIL [Concomitant]
  8. TORSEMIDE [Concomitant]
     Dosage: DOSE:10,UNIT:UNSPECIFIED

REACTIONS (1)
  - INTRA-ABDOMINAL HAEMORRHAGE [None]
